FAERS Safety Report 15528189 (Version 1)
Quarter: 2018Q4

REPORT INFORMATION
  Report Type: Spontaneous
  Country: US (occurrence: US)
  Receive Date: 20181020
  Receipt Date: 20181020
  Transmission Date: 20190205
  Serious: No
  Sender: FDA-Public Use
  Company Number: US-JNJFOC-20171232027

PATIENT
  Sex: Male

DRUGS (4)
  1. TYLENOL EXTRA STRENGTH [Concomitant]
     Active Substance: ACETAMINOPHEN
     Indication: PAIN
     Route: 065
  2. TYLENOL EXTRA STRENGTH [Concomitant]
     Active Substance: ACETAMINOPHEN
     Indication: OROPHARYNGEAL PAIN
     Route: 065
  3. SUDAFED NASAL DECONGESTANT MAXIMUM STRENGTH [Suspect]
     Active Substance: PSEUDOEPHEDRINE HYDROCHLORIDE
     Indication: OROPHARYNGEAL PAIN
     Dosage: TWO 30 MG TABLETS EVERY 4 HOURS
     Route: 065
     Dates: start: 20171219
  4. SUDAFED NASAL DECONGESTANT MAXIMUM STRENGTH [Suspect]
     Active Substance: PSEUDOEPHEDRINE HYDROCHLORIDE
     Indication: PAIN
     Dosage: TWO 30 MG TABLETS EVERY 4 HOURS
     Route: 065
     Dates: start: 20171219

REACTIONS (2)
  - Product use in unapproved indication [Unknown]
  - Therapeutic response unexpected [Unknown]

NARRATIVE: CASE EVENT DATE: 201712
